FAERS Safety Report 9886864 (Version 1)
Quarter: 2014Q1

REPORT INFORMATION
  Report Type: Spontaneous
  Country: US (occurrence: US)
  Receive Date: 20140210
  Receipt Date: 20140210
  Transmission Date: 20141002
  Serious: No
  Sender: FDA-Public Use
  Company Number: US-009507513-1401USA012486

PATIENT
  Age: 23 Year
  Sex: Male

DRUGS (1)
  1. PROVENTIL [Suspect]
     Indication: WHEEZING
     Dosage: UNK
     Route: 055
     Dates: start: 20140117

REACTIONS (2)
  - Underdose [Unknown]
  - Product quality issue [Unknown]
